FAERS Safety Report 6541809-8 (Version None)
Quarter: 2010Q1

REPORT INFORMATION
  Report Type: 
  Country: None (occurrence: None)
  Receive Date: 20100119
  Receipt Date: 20100108
  Transmission Date: 20100710
  Serious: Yes (Other)
  Sender: FDA-Public Use
  Company Number: PHHY2009CA19893

PATIENT
  Sex: Female

DRUGS (1)
  1. ZOMETA [Suspect]
     Indication: COLORECTAL CANCER METASTATIC
     Dosage: 4 MG EVERY 4 WEEKS
     Route: 042
     Dates: start: 20090224

REACTIONS (11)
  - ASPARTATE AMINOTRANSFERASE INCREASED [None]
  - BLOOD CALCIUM DECREASED [None]
  - BLOOD CHLORIDE INCREASED [None]
  - BLOOD UREA INCREASED [None]
  - CARCINOEMBRYONIC ANTIGEN INCREASED [None]
  - FLUID RETENTION [None]
  - HAEMOGLOBIN DECREASED [None]
  - LYMPHOCYTE COUNT DECREASED [None]
  - MEAN CELL HAEMOGLOBIN INCREASED [None]
  - MEAN CELL VOLUME INCREASED [None]
  - WHITE BLOOD CELL COUNT DECREASED [None]
